FAERS Safety Report 20627621 (Version 2)
Quarter: 2022Q2

REPORT INFORMATION
  Report Type: Report from Study
  Country: DE (occurrence: DE)
  Receive Date: 20220323
  Receipt Date: 20220504
  Transmission Date: 20220721
  Serious: Yes (Hospitalization)
  Sender: FDA-Public Use
  Company Number: DE-ABBVIE-22K-062-4284408-00

PATIENT
  Age: 40 Year
  Sex: Female
  Weight: 55 kg

DRUGS (5)
  1. HUMIRA [Suspect]
     Active Substance: ADALIMUMAB
     Indication: Crohn^s disease
     Route: 058
     Dates: start: 20210423, end: 202106
  2. HUMIRA [Suspect]
     Active Substance: ADALIMUMAB
     Route: 058
     Dates: start: 202110, end: 202202
  3. HUMIRA [Suspect]
     Active Substance: ADALIMUMAB
     Route: 058
     Dates: start: 202202
  4. VITAMIN B12 [Concomitant]
     Active Substance: CYANOCOBALAMIN
     Indication: Crohn^s disease
     Route: 048
  5. AZATHIOPRINE [Concomitant]
     Active Substance: AZATHIOPRINE
     Indication: Product used for unknown indication
     Route: 048
     Dates: start: 202104

REACTIONS (18)
  - Fistula [Recovered/Resolved]
  - Abscess [Recovered/Resolved]
  - Scar [Recovered/Resolved]
  - Red blood cell count decreased [Unknown]
  - Haemoglobin decreased [Recovered/Resolved]
  - Haematocrit decreased [Unknown]
  - Platelet count increased [Recovered/Resolved]
  - Amylase increased [Unknown]
  - Alanine aminotransferase increased [Unknown]
  - Blood creatinine decreased [Unknown]
  - Platelet count increased [Recovered/Resolved]
  - Neutrophil count increased [Recovered/Resolved]
  - Lymphocyte count decreased [Recovered/Resolved]
  - Monocyte count decreased [Recovered/Resolved]
  - Neutrophil count increased [Recovered/Resolved]
  - Blood creatinine decreased [Recovered/Resolved]
  - Blood creatinine decreased [Recovered/Resolved]
  - Alanine aminotransferase increased [Recovered/Resolved]

NARRATIVE: CASE EVENT DATE: 20210430
